FAERS Safety Report 14141296 (Version 6)
Quarter: 2018Q2

REPORT INFORMATION
  Report Type: Spontaneous
  Country: FR (occurrence: FR)
  Receive Date: 20171030
  Receipt Date: 20180412
  Transmission Date: 20180711
  Serious: Yes (Hospitalization)
  Sender: FDA-Public Use
  Company Number: FR-BIOGEN-2017BV000382

PATIENT
  Sex: Male
  Weight: 49 kg

DRUGS (4)
  1. TRIUMEQ [Concomitant]
     Active Substance: ABACAVIR SULFATE\DOLUTEGRAVIR SODIUM\LAMIVUDINE
     Indication: ANTIVIRAL TREATMENT
     Route: 048
  2. RENUTRYL [Concomitant]
     Indication: NUTRITIONAL SUPPLEMENTATION
     Route: 048
  3. ELOCTA [Suspect]
     Active Substance: EFMOROCTOCOG ALFA
     Indication: FACTOR VIII DEFICIENCY
     Dosage: 41 IU/KG INJECTION ON DEMAND
     Route: 042
     Dates: start: 20170906, end: 20171018
  4. ZAMUDOL [Concomitant]
     Active Substance: TRAMADOL HYDROCHLORIDE
     Indication: ANALGESIC THERAPY
     Route: 048

REACTIONS (2)
  - Haematuria [Recovered/Resolved]
  - Factor VIII inhibition [Not Recovered/Not Resolved]
